FAERS Safety Report 21197013 (Version 36)
Quarter: 2024Q2

REPORT INFORMATION
  Report Type: Report from Study
  Country: MX (occurrence: MX)
  Receive Date: 20220810
  Receipt Date: 20240606
  Transmission Date: 20240716
  Serious: Yes (Other)
  Sender: FDA-Public Use
  Company Number: MX-TAKEDA-2022TUS048860

PATIENT
  Age: 49 Year
  Sex: Female
  Weight: 77.551 kg

DRUGS (19)
  1. ICATIBANT [Suspect]
     Active Substance: ICATIBANT ACETATE
     Indication: Hereditary angioedema
     Dosage: 1 DOSAGE FORM
     Route: 058
     Dates: start: 20190801
  2. ICATIBANT [Suspect]
     Active Substance: ICATIBANT ACETATE
     Indication: Hereditary angioedema
     Dosage: 1 DOSAGE FORM
     Route: 058
     Dates: start: 20190801
  3. ICATIBANT [Suspect]
     Active Substance: ICATIBANT ACETATE
     Dosage: 30 MILLIGRAM
     Route: 058
     Dates: start: 201908
  4. ICATIBANT [Suspect]
     Active Substance: ICATIBANT ACETATE
     Dosage: 30 MILLIGRAM
     Route: 058
     Dates: start: 201908
  5. ICATIBANT [Suspect]
     Active Substance: ICATIBANT ACETATE
     Dosage: UNK
     Route: 058
  6. ICATIBANT [Suspect]
     Active Substance: ICATIBANT ACETATE
     Dosage: UNK
     Route: 058
  7. ICATIBANT [Suspect]
     Active Substance: ICATIBANT ACETATE
     Dosage: 30 MILLIGRAM
     Route: 058
     Dates: start: 2019
  8. ICATIBANT [Suspect]
     Active Substance: ICATIBANT ACETATE
     Dosage: 30 MILLIGRAM
     Route: 058
     Dates: start: 2019
  9. ICATIBANT [Suspect]
     Active Substance: ICATIBANT ACETATE
     Dosage: 30 MILLIGRAM, 3/MONTH
     Route: 065
  10. ICATIBANT [Suspect]
     Active Substance: ICATIBANT ACETATE
     Dosage: 30 MILLIGRAM, 3/MONTH
     Route: 065
  11. ICATIBANT [Suspect]
     Active Substance: ICATIBANT ACETATE
     Dosage: 1 DOSAGE FORM, MONTHLY
     Route: 058
  12. ICATIBANT [Suspect]
     Active Substance: ICATIBANT ACETATE
     Dosage: 1 DOSAGE FORM, MONTHLY
     Route: 058
  13. ICATIBANT [Suspect]
     Active Substance: ICATIBANT ACETATE
     Dosage: UNK
     Route: 058
  14. ICATIBANT [Suspect]
     Active Substance: ICATIBANT ACETATE
     Dosage: UNK
     Route: 058
  15. ICATIBANT [Suspect]
     Active Substance: ICATIBANT ACETATE
     Dosage: 30 MILLIGRAM
     Route: 058
  16. ICATIBANT [Suspect]
     Active Substance: ICATIBANT ACETATE
     Dosage: 30 MILLIGRAM
     Route: 058
  17. ICATIBANT [Suspect]
     Active Substance: ICATIBANT ACETATE
     Dosage: UNK
     Route: 058
  18. ICATIBANT [Suspect]
     Active Substance: ICATIBANT ACETATE
     Dosage: UNK
     Route: 058
  19. ENOXAPARIN [Concomitant]
     Active Substance: ENOXAPARIN
     Dosage: UNK
     Route: 065

REACTIONS (41)
  - COVID-19 [Recovering/Resolving]
  - Respiratory distress [Recovered/Resolved]
  - Nodule [Not Recovered/Not Resolved]
  - Constipation [Not Recovered/Not Resolved]
  - Initial insomnia [Recovering/Resolving]
  - Pharyngitis [Not Recovered/Not Resolved]
  - Fall [Recovering/Resolving]
  - Limb injury [Recovering/Resolving]
  - Pain in extremity [Recovering/Resolving]
  - Hand fracture [Recovering/Resolving]
  - Blood urine present [Unknown]
  - Conjunctivitis [Not Recovered/Not Resolved]
  - Noninfective gingivitis [Unknown]
  - Arthralgia [Unknown]
  - Asthenia [Unknown]
  - Discouragement [Unknown]
  - Nightmare [Unknown]
  - Insomnia [Unknown]
  - Panic reaction [Unknown]
  - Memory impairment [Unknown]
  - Nausea [Unknown]
  - Migraine [Recovered/Resolved]
  - Haematuria [Recovered/Resolved]
  - Gastritis [Not Recovered/Not Resolved]
  - Dyspepsia [Not Recovered/Not Resolved]
  - Haemorrhoids [Recovered/Resolved]
  - Fatigue [Recovered/Resolved]
  - Vomiting [Not Recovered/Not Resolved]
  - Chills [Recovered/Resolved]
  - Lethargy [Recovered/Resolved]
  - Oropharyngeal discomfort [Not Recovered/Not Resolved]
  - Throat irritation [Not Recovered/Not Resolved]
  - Influenza like illness [Unknown]
  - Productive cough [Not Recovered/Not Resolved]
  - Influenza [Recovering/Resolving]
  - Aphonia [Recovering/Resolving]
  - Tachycardia [Not Recovered/Not Resolved]
  - Blood pressure increased [Recovered/Resolved]
  - Diarrhoea [Not Recovered/Not Resolved]
  - Abdominal pain [Recovered/Resolved]
  - Headache [Recovered/Resolved]

NARRATIVE: CASE EVENT DATE: 20220731
